FAERS Safety Report 8778486 (Version 1)
Quarter: 2012Q4

REPORT INFORMATION
  Report Type: Report from Study
  Country: AU (occurrence: AU)
  Receive Date: 20120912
  Receipt Date: 20120912
  Transmission Date: 20130627
  Serious: Yes (Life-Threatening, Hospitalization)
  Sender: FDA-Public Use
  Company Number: AU-VERTEX PHARMACEUTICAL INC.-2012-020939

PATIENT
  Age: 41 Year
  Sex: Female
  Weight: 78 kg

DRUGS (3)
  1. INCIVO [Suspect]
     Indication: HEPATITIS C
     Dosage: UNK
     Route: 048
  2. CONCERTA [Suspect]
     Indication: PRODUCT USED FOR UNKNOWN INDICATION
     Dosage: UNK
     Route: 048
  3. RIBAVIRIN [Concomitant]
     Indication: HEPATITIS C

REACTIONS (7)
  - Loss of consciousness [Recovered/Resolved]
  - Overdose [Unknown]
  - Drug diversion [Unknown]
  - Confusional state [None]
  - Drug interaction [None]
  - Toxicity to various agents [None]
  - Cognitive disorder [None]
